FAERS Safety Report 4925174-5 (Version None)
Quarter: 2006Q1

REPORT INFORMATION
  Report Type: 
  Country: None (occurrence: None)
  Receive Date: 20060228
  Receipt Date: 20060103
  Transmission Date: 20060701
  Serious: No
  Sender: FDA-Public Use
  Company Number: US-GLAXOSMITHKLINE-A0587560A

PATIENT
  Age: 78 Year
  Sex: Male

DRUGS (5)
  1. AVODART [Suspect]
     Indication: BENIGN PROSTATIC HYPERPLASIA
     Dosage: .5MG PER DAY
     Route: 048
     Dates: start: 20040701, end: 20051001
  2. FLOMAX [Concomitant]
  3. LIPITOR [Concomitant]
  4. ALTACE [Concomitant]
  5. MACROBID [Concomitant]

REACTIONS (3)
  - GYNAECOMASTIA [None]
  - HYPERTROPHY BREAST [None]
  - NIPPLE PAIN [None]
